FAERS Safety Report 11058079 (Version 1)
Quarter: 2015Q2

REPORT INFORMATION
  Report Type: Spontaneous
  Country: None (occurrence: None)
  Receive Date: 20150422
  Receipt Date: 20150422
  Transmission Date: 20150821
  Serious: Yes (Death, Life-Threatening)
  Sender: FDA-Public Use
  Company Number: None

PATIENT
  Age: 78 Year
  Sex: Male
  Weight: 78.93 kg

DRUGS (7)
  1. GLIMEPIRIDE. [Concomitant]
     Active Substance: GLIMEPIRIDE
  2. ATENOLOL. [Concomitant]
     Active Substance: ATENOLOL
  3. CHLOROPROCAINE [Suspect]
     Active Substance: CHLOROPROCAINE
     Indication: HERNIA REPAIR
     Dosage: ONE INJECTION?45MG INJECTION, ONE TIME, INJECTION INTO SPINAL AREA
  4. BABY ASPRIN [Concomitant]
     Active Substance: ASPIRIN
  5. ZOLOFT [Concomitant]
     Active Substance: SERTRALINE HYDROCHLORIDE
  6. EYE DROPS FOR GLAUCOMA [Concomitant]
  7. CHLOROPROCAINE [Suspect]
     Active Substance: CHLOROPROCAINE
     Indication: ANAESTHESIA
     Dosage: ONE INJECTION?45MG INJECTION, ONE TIME, INJECTION INTO SPINAL AREA

REACTIONS (6)
  - Unresponsive to stimuli [None]
  - Cardiac arrest [None]
  - Anaesthetic complication foetal [None]
  - Wrong technique in drug usage process [None]
  - Bradycardia [None]
  - Hypotension [None]

NARRATIVE: CASE EVENT DATE: 20150402
